FAERS Safety Report 12860306 (Version 1)
Quarter: 2016Q4

REPORT INFORMATION
  Report Type: Report from Study
  Country: FR (occurrence: FR)
  Receive Date: 20161019
  Receipt Date: 20161019
  Transmission Date: 20170207
  Serious: Yes (Death, Hospitalization)
  Sender: FDA-Public Use
  Company Number: FR-ROCHE-1842473

PATIENT
  Sex: Female

DRUGS (18)
  1. RITUXIMAB [Suspect]
     Active Substance: RITUXIMAB
     Indication: RHEUMATOID ARTHRITIS
     Dosage: CYCLE 1 (C1) DAY 1 (D1)
     Route: 042
     Dates: start: 20060323
  2. RITUXIMAB [Suspect]
     Active Substance: RITUXIMAB
     Dosage: CYCLE 3 (C3) DAY 1 (D1)
     Route: 042
     Dates: start: 20080212
  3. METHOTREXATE. [Concomitant]
     Active Substance: METHOTREXATE
     Dosage: 15 MG/WEEK
     Route: 065
  4. RITUXIMAB [Suspect]
     Active Substance: RITUXIMAB
     Dosage: CYCLE 4 (C4) DAY 15 (D15)
     Route: 042
     Dates: start: 20110606
  5. METHOTREXATE. [Concomitant]
     Active Substance: METHOTREXATE
     Dosage: 12.5 MG/WEEK
     Route: 065
  6. RITUXIMAB [Suspect]
     Active Substance: RITUXIMAB
     Dosage: CYCLE 1 (C1) DAY 15 (D15)
     Route: 042
     Dates: start: 20060413
  7. RITUXIMAB [Suspect]
     Active Substance: RITUXIMAB
     Dosage: CYCLE 3 (C3) DAY 15 (D15)
     Route: 042
     Dates: start: 20080226
  8. METHOTREXATE. [Concomitant]
     Active Substance: METHOTREXATE
     Dosage: 12.5 MG/WEEK, ON 31/MAY/2007, DECIDED TO DECREASE METHOTREXATE AT 12.5 MG/WEEK.
     Route: 065
  9. RITUXIMAB [Suspect]
     Active Substance: RITUXIMAB
     Dosage: CYCLE 4 (C4) DAY 1 (D1)
     Route: 042
     Dates: start: 20110520
  10. RITUXIMAB [Suspect]
     Active Substance: RITUXIMAB
     Dosage: CYCLE 5 (C5) DAY 15 (D15)
     Route: 042
     Dates: start: 20120213, end: 20121204
  11. CORTANCYL [Concomitant]
     Active Substance: PREDNISONE
     Dosage: 10 MG/DAY
     Route: 065
  12. RITUXIMAB [Suspect]
     Active Substance: RITUXIMAB
     Dosage: CYCLE 2 (C2) DAY 1 (D1)
     Route: 042
     Dates: start: 20070531
  13. METHYLPREDNISOLONE. [Concomitant]
     Active Substance: METHYLPREDNISOLONE
     Indication: PREMEDICATION
     Route: 065
     Dates: start: 20070614
  14. RITUXIMAB [Suspect]
     Active Substance: RITUXIMAB
     Dosage: CYCLE 2 (C2) DAY 15 (D15)
     Route: 042
     Dates: start: 20070614
  15. ABATACEPT [Concomitant]
     Active Substance: ABATACEPT
  16. RITUXIMAB [Suspect]
     Active Substance: RITUXIMAB
     Dosage: CYCLE 5 (C5) DAY 1 (D1)
     Route: 042
     Dates: start: 20120130
  17. METHOTREXATE. [Concomitant]
     Active Substance: METHOTREXATE
     Route: 065
     Dates: start: 20130109
  18. PARACETAMOL [Concomitant]
     Active Substance: ACETAMINOPHEN
     Indication: PREMEDICATION
     Route: 065
     Dates: start: 20070614

REACTIONS (10)
  - Bronchitis haemophilus [Fatal]
  - General physical health deterioration [Not Recovered/Not Resolved]
  - Weight decreased [Not Recovered/Not Resolved]
  - Infusion related reaction [Unknown]
  - Asthenia [Not Recovered/Not Resolved]
  - Acute respiratory failure [Fatal]
  - Depression [Fatal]
  - Dyspnoea exertional [Not Recovered/Not Resolved]
  - Chronic obstructive pulmonary disease [Not Recovered/Not Resolved]
  - Emphysema [Not Recovered/Not Resolved]

NARRATIVE: CASE EVENT DATE: 2007
